FAERS Safety Report 10182451 (Version 1)
Quarter: 2014Q2

REPORT INFORMATION
  Report Type: Spontaneous
  Country: US (occurrence: None)
  Receive Date: 20140519
  Receipt Date: 20140519
  Transmission Date: 20141212
  Serious: Yes (Life-Threatening, Hospitalization, Disabling)
  Sender: FDA-Public Use
  Company Number: None

PATIENT
  Age: 58 Year
  Sex: Male
  Weight: 140.62 kg

DRUGS (3)
  1. METHYLPREDNISOLONE ACETATE [Suspect]
     Indication: BACK PAIN
     Dosage: INJECTED INTO SPINAL AREA
     Dates: start: 20120904, end: 20120904
  2. METHYLPREDNISOLONE ACETATE [Suspect]
     Indication: PAIN IN EXTREMITY
     Dosage: INJECTED INTO SPINAL AREA
     Dates: start: 20120904, end: 20120904
  3. METHYLPREDNISOLONE ACETATE [Suspect]
     Indication: HYPOAESTHESIA
     Dosage: INJECTED INTO SPINAL AREA
     Dates: start: 20120904, end: 20120904

REACTIONS (10)
  - Meningitis fungal [None]
  - Renal failure [None]
  - Product contamination [None]
  - Emotional distress [None]
  - Photosensitivity reaction [None]
  - Muscle spasms [None]
  - Tremor [None]
  - Cardio-respiratory arrest [None]
  - Apparent death [None]
  - Malaise [None]
